FAERS Safety Report 5199568-X (Version None)
Quarter: 2007Q1

REPORT INFORMATION
  Report Type: 
  Country: None (occurrence: None)
  Receive Date: 20070103
  Receipt Date: 20070103
  Transmission Date: 20070707
  Serious: Yes (Life-Threatening, Hospitalization, Other)
  Sender: FDA-Public Use
  Company Number: None

PATIENT
  Age: 48 Year
  Sex: Female
  Weight: 52.1637 kg

DRUGS (2)
  1. LEVAQUIN [Suspect]
     Indication: CRANIOTOMY
     Dosage: 1 TABLET QD PO
     Route: 048
     Dates: start: 20061214, end: 20061216
  2. LEVAQUIN [Suspect]
     Indication: POSTOPERATIVE CARE
     Dosage: 1 TABLET QD PO
     Route: 048
     Dates: start: 20061214, end: 20061216

REACTIONS (6)
  - ANAPHYLACTIC REACTION [None]
  - ANXIETY [None]
  - CHEST DISCOMFORT [None]
  - PLEURISY [None]
  - RESPIRATORY DISTRESS [None]
  - TACHYCARDIA [None]
